FAERS Safety Report 16362990 (Version 1)
Quarter: 2019Q2

REPORT INFORMATION
  Report Type: Report from Study
  Country: GB (occurrence: GB)
  Receive Date: 20190528
  Receipt Date: 20190528
  Transmission Date: 20190711
  Serious: Yes (Hospitalization)
  Sender: FDA-Public Use
  Company Number: GB-EXELIXIS-XL18419019630

PATIENT
  Age: 69 Year
  Sex: Male
  Weight: 62 kg

DRUGS (8)
  1. CABOZANTINIB [Suspect]
     Active Substance: CABOZANTINIB
     Dosage: UNK, QD
     Dates: start: 20190318
  2. METFORMIN [Concomitant]
     Active Substance: METFORMIN HYDROCHLORIDE
     Dosage: 500 MG, TID
     Route: 048
  3. CB-839 OR PLACEBO [Suspect]
     Active Substance: TELAGLENASTAT
     Indication: METASTATIC RENAL CELL CARCINOMA
     Dosage: 800 MG, BID
     Route: 048
     Dates: start: 20190305, end: 20190313
  4. THYROXINE [Concomitant]
     Active Substance: LEVOTHYROXINE
     Dosage: 75 ?G, QD
     Route: 048
  5. CB-839 OR PLACEBO [Suspect]
     Active Substance: TELAGLENASTAT
     Dosage: UNK
     Route: 048
     Dates: start: 20190318
  6. CABOZANTINIB [Suspect]
     Active Substance: CABOZANTINIB
     Indication: METASTATIC RENAL CELL CARCINOMA
     Dosage: 60 MG, QD
     Dates: start: 20190305, end: 20190312
  7. TINZAPARIN [Concomitant]
     Active Substance: TINZAPARIN
     Dosage: 11000 IU, QD
     Route: 058
  8. CLARITHROMYCIN. [Concomitant]
     Active Substance: CLARITHROMYCIN
     Dosage: 250 MG, UNK
     Route: 048

REACTIONS (1)
  - Gastrooesophageal reflux disease [Recovered/Resolved]

NARRATIVE: CASE EVENT DATE: 20190313
